FAERS Safety Report 20729230 (Version 1)
Quarter: 2022Q2

REPORT INFORMATION
  Report Type: Spontaneous
  Country: FR (occurrence: FR)
  Receive Date: 20220420
  Receipt Date: 20220420
  Transmission Date: 20220720
  Serious: Yes (Death, Other)
  Sender: FDA-Public Use
  Company Number: FR-PHARMALEX-2022000416

PATIENT
  Age: 27 Year
  Sex: Female

DRUGS (2)
  1. TRAMADOL HYDROCHLORIDE [Suspect]
     Active Substance: TRAMADOL HYDROCHLORIDE
     Indication: Pain
     Dosage: 100 MILLIGRAM
     Route: 042
  2. PERFALGAN [Concomitant]
     Active Substance: ACETAMINOPHEN
     Indication: Pain
     Dosage: 1 GRAM
     Route: 042

REACTIONS (7)
  - Cardio-respiratory arrest [Fatal]
  - Cardiotoxicity [Fatal]
  - Pallor [Unknown]
  - Hyperhidrosis [Unknown]
  - Nausea [Unknown]
  - Syncope [Unknown]
  - Generalised tonic-clonic seizure [Unknown]
